FAERS Safety Report 24531812 (Version 1)
Quarter: 2024Q4

REPORT INFORMATION
  Report Type: Spontaneous
  Country: BE (occurrence: BE)
  Receive Date: 20241022
  Receipt Date: 20241022
  Transmission Date: 20250114
  Serious: Yes (Hospitalization, Other)
  Sender: CHEPLAPHARM
  Company Number: BE-CHEPLA-2024013190

PATIENT
  Age: 56 Year
  Sex: Male

DRUGS (3)
  1. CAPECITABINE [Suspect]
     Active Substance: CAPECITABINE
     Indication: Adenocarcinoma of colon
     Dosage: FOR 14 DAYS, EVERY 3 WEEKS
  2. CAPECITABINE [Suspect]
     Active Substance: CAPECITABINE
     Indication: Adenocarcinoma of colon
     Dosage: FIRST CYCLE WAS STARTED WITH 50% DOSE REDUCTION OF CAPECITABINE
  3. OXALIPLATIN [Suspect]
     Active Substance: OXALIPLATIN
     Indication: Adenocarcinoma of colon
     Dosage: ON DAY 1; EVERY 3 WEEKS

REACTIONS (8)
  - Febrile neutropenia [Unknown]
  - Toxicity to various agents [Unknown]
  - Erythema [Unknown]
  - Staphylococcal infection [Unknown]
  - Vomiting [Unknown]
  - Diarrhoea [Unknown]
  - Pancytopenia [Recovering/Resolving]
  - Mucosal inflammation [Unknown]
